FAERS Safety Report 9387381 (Version 1)
Quarter: 2013Q3

REPORT INFORMATION
  Report Type: Report from Study
  Country: CN (occurrence: CN)
  Receive Date: 20130708
  Receipt Date: 20130708
  Transmission Date: 20140515
  Serious: Yes (Other)
  Sender: FDA-Public Use
  Company Number: CN-SANOFI-AVENTIS-2013SA067685

PATIENT
  Sex: 0

DRUGS (3)
  1. FLUOROURACIL [Suspect]
     Indication: ADENOCARCINOMA GASTRIC
     Dosage: 46 HOUR CONTINOUS INFUSION; IN EACH TWO WEEKS
     Route: 065
  2. OXALIPLATIN [Suspect]
     Indication: ADENOCARCINOMA GASTRIC
     Dosage: 2 HOUR INFUSION; IN EACH TWO WEEKS
     Route: 065
  3. FOLINIC ACID [Suspect]
     Indication: ADENOCARCINOMA GASTRIC
     Dosage: IN EACH TWO WEEKS
     Route: 065

REACTIONS (1)
  - Failure to anastomose [Unknown]
